FAERS Safety Report 5339027-4 (Version None)
Quarter: 2007Q2

REPORT INFORMATION
  Report Type: 
  Country: None (occurrence: None)
  Receive Date: 20070402
  Receipt Date: 20070117
  Transmission Date: 20071010
  Serious: Yes (Other)
  Sender: FDA-Public Use
  Company Number: 151892USA

PATIENT
  Age: 56 Year
  Sex: Female

DRUGS (6)
  1. SIMVASTATIN [Suspect]
     Indication: BLOOD CHOLESTEROL INCREASED
     Dosage: 40MG (40 MG, 1 IN 1 D), ORAL
     Route: 048
     Dates: start: 20061027, end: 20061122
  2. METHOCARBAMOL [Concomitant]
  3. TORSEMIDE [Concomitant]
  4. FISH OIL [Concomitant]
  5. POTASSIUM CHLORIDE [Concomitant]
  6. ACETYLSALICYLIC ACID SRT [Concomitant]

REACTIONS (4)
  - BLOOD CREATINE PHOSPHOKINASE INCREASED [None]
  - INJURY [None]
  - LIVER FUNCTION TEST ABNORMAL [None]
  - MUSCLE INJURY [None]
